FAERS Safety Report 7386062-0 (Version None)
Quarter: 2011Q1

REPORT INFORMATION
  Report Type: 
  Country: None (occurrence: None)
  Receive Date: 20110323
  Receipt Date: 20110310
  Transmission Date: 20110831
  Serious: Yes (Death, Hospitalization)
  Sender: FDA-Public Use
  Company Number: 8040289

PATIENT
  Sex: Male
  Weight: 110.2 kg

DRUGS (12)
  1. ACTOS [Concomitant]
  2. CERTOLIZUMAB PEGOL [Suspect]
     Indication: RHEUMATOID ARTHRITIS
     Dosage: SUBCUTANEOUS
     Route: 058
     Dates: start: 20081111, end: 20081125
  3. PREDNISONE [Concomitant]
  4. OMEPRAZOLE [Concomitant]
  5. ROSUVASTATIN [Concomitant]
  6. LISINOPRIL [Concomitant]
  7. FOLIC ACID [Concomitant]
  8. LANTUS [Concomitant]
  9. GLYBURIDE [Concomitant]
  10. METHOTREXATE [Concomitant]
  11. METFORMIN [Concomitant]
  12. 4-WAY NASAL [Concomitant]

REACTIONS (24)
  - BLOOD PRESSURE INCREASED [None]
  - BLOOD UREA INCREASED [None]
  - RESPIRATORY FAILURE [None]
  - ASPIRATION [None]
  - SEPSIS [None]
  - HYPOTENSION [None]
  - CANDIDIASIS [None]
  - EFFUSION [None]
  - STREPTOCOCCUS TEST POSITIVE [None]
  - PAIN IN EXTREMITY [None]
  - PNEUMONIA NECROTISING [None]
  - RHEUMATOID ARTHRITIS [None]
  - SINUS TACHYCARDIA [None]
  - HAEMATOCRIT DECREASED [None]
  - HAEMOGLOBIN DECREASED [None]
  - BLOOD ALBUMIN DECREASED [None]
  - BACK PAIN [None]
  - BLOOD GLUCOSE INCREASED [None]
  - DIALYSIS [None]
  - REFUSAL OF TREATMENT BY PATIENT [None]
  - ATELECTASIS [None]
  - DYSSTASIA [None]
  - DIABETIC NEUROPATHY [None]
  - BLOOD CREATINE INCREASED [None]
